FAERS Safety Report 5274822-1 (Version None)
Quarter: 2007Q1

REPORT INFORMATION
  Report Type: 
  Country: None (occurrence: None)
  Receive Date: 20061208
  Receipt Date: 20051221
  Transmission Date: 20070707
  Serious: No
  Sender: FDA-Public Use
  Company Number: 2005UW08406

PATIENT
  Age: 50 Year
  Sex: Male
  Weight: 79.3795 kg

DRUGS (5)
  1. CRESTOR [Suspect]
     Dosage: LOWEST DOSE
     Dates: start: 20040901, end: 20041220
  2. HYDROCHLOROTHIAZIDE [Concomitant]
  3. DILTIAZEN [Concomitant]
  4. ASCORBIC ACID [Concomitant]
  5. FAMOTIDINE [Concomitant]

REACTIONS (1)
  - PAIN IN EXTREMITY [None]
